FAERS Safety Report 7809951-9 (Version None)
Quarter: 2011Q4

REPORT INFORMATION
  Report Type: 
  Country: None (occurrence: None)
  Receive Date: 20111012
  Receipt Date: 20111010
  Transmission Date: 20120403
  Serious: No
  Sender: FDA-Public Use
  Company Number: US-PFIZER INC-2011241656

PATIENT
  Sex: Male

DRUGS (2)
  1. IBUPROFEN (ADVIL) [Suspect]
     Indication: TOOTHACHE
     Dosage: FOUR CAPLETS EVERY FOUR HOURS
     Dates: start: 20111001
  2. IBUPROFEN (ADVIL) [Suspect]
     Indication: TOOTH INFECTION
     Dosage: UNK
     Dates: start: 20111001

REACTIONS (6)
  - FATIGUE [None]
  - OVERDOSE [None]
  - ASTHENIA [None]
  - NAUSEA [None]
  - VOMITING [None]
  - MALAISE [None]
